FAERS Safety Report 12275801 (Version 3)
Quarter: 2016Q2

REPORT INFORMATION
  Report Type: Report from Study
  Country: PT (occurrence: PT)
  Receive Date: 20160418
  Receipt Date: 20160606
  Transmission Date: 20160815
  Serious: Yes (Hospitalization, Other)
  Sender: FDA-Public Use
  Company Number: PT-ROCHE-1741019

PATIENT
  Age: 54 Year
  Sex: Female

DRUGS (12)
  1. NAPROXEN. [Concomitant]
     Active Substance: NAPROXEN
     Dosage: SOS
     Route: 065
  2. TAPENTADOL [Concomitant]
     Active Substance: TAPENTADOL
     Route: 065
  3. ESOMEPRAZOLE [Concomitant]
     Active Substance: ESOMEPRAZOLE
     Dosage: FASTING
     Route: 065
  4. FLUPIRTINE [Concomitant]
     Active Substance: FLUPIRTINE
     Dosage: SOS
     Route: 065
  5. FOLIC ACID. [Concomitant]
     Active Substance: FOLIC ACID
     Dosage: EVERY DAY, EXCEPT ON MONDAY
     Route: 065
  6. ROACTEMRA [Suspect]
     Active Substance: TOCILIZUMAB
     Indication: PRODUCT USED FOR UNKNOWN INDICATION
     Route: 058
  7. FUROSEMIDE. [Concomitant]
     Active Substance: FUROSEMIDE
     Dosage: FASTING
     Route: 065
  8. ADALIMUMAB [Concomitant]
     Active Substance: ADALIMUMAB
     Dosage: WHICH HAD STOPPED AT ABOUT 1 WEEK AGO DUE TO SURGICAL MOTIVES.
     Route: 065
     Dates: end: 201603
  9. PREDNISOLONE. [Concomitant]
     Active Substance: PREDNISOLONE
     Dosage: 1 TABLET AT BREAKFAST + HALF TABLET AT DINNER
     Route: 065
  10. THIOCOLCHICOSIDE [Concomitant]
     Active Substance: THIOCOLCHICOSIDE
     Dosage: AT BEDTIME
     Route: 065
  11. METHOTREXATE [Concomitant]
     Active Substance: METHOTREXATE
     Dosage: 50MG/ML
     Route: 065
  12. SIMVASTATIN. [Concomitant]
     Active Substance: SIMVASTATIN
     Dosage: AFTER DINER
     Route: 065

REACTIONS (25)
  - Oedema peripheral [Unknown]
  - Hypoxia [Unknown]
  - Pain in extremity [Unknown]
  - Hypoglycaemia [Unknown]
  - Hypoperfusion [Unknown]
  - White blood cell count increased [Recovering/Resolving]
  - Hypocapnia [Unknown]
  - Vulvovaginal pruritus [Unknown]
  - Pyrexia [Recovered/Resolved]
  - Dyspnoea [Unknown]
  - Bronchospasm [Unknown]
  - Influenza [Unknown]
  - Stress [Unknown]
  - Septic shock [Unknown]
  - Oxygen saturation decreased [Unknown]
  - C-reactive protein increased [Unknown]
  - Diabetes mellitus inadequate control [Not Recovered/Not Resolved]
  - H1N1 influenza [Recovering/Resolving]
  - Hypotension [Unknown]
  - Acute kidney injury [Unknown]
  - Sinus tachycardia [Unknown]
  - Fatigue [Unknown]
  - Hypokalaemia [Unknown]
  - Somnolence [Unknown]
  - Blood pressure systolic increased [Unknown]

NARRATIVE: CASE EVENT DATE: 20160218
